FAERS Safety Report 20833988 (Version 1)
Quarter: 2022Q2

REPORT INFORMATION
  Report Type: Spontaneous
  Country: CN (occurrence: None)
  Receive Date: 20220516
  Receipt Date: 20220516
  Transmission Date: 20220721
  Serious: Yes (Other)
  Sender: FDA-Public Use
  Company Number: 2022A183546

PATIENT
  Age: 21769 Day
  Sex: Male
  Weight: 55 kg

DRUGS (1)
  1. BRILINTA [Suspect]
     Active Substance: TICAGRELOR
     Indication: Acute myocardial infarction
     Route: 048
     Dates: start: 20220419, end: 20220505

REACTIONS (1)
  - Asphyxia [Recovering/Resolving]

NARRATIVE: CASE EVENT DATE: 20220505
